FAERS Safety Report 9604604 (Version 4)
Quarter: 2013Q4

REPORT INFORMATION
  Report Type: Spontaneous
  Country: US (occurrence: US)
  Receive Date: 20131008
  Receipt Date: 20131111
  Transmission Date: 20140711
  Serious: Yes (Other)
  Sender: FDA-Public Use
  Company Number: US-PFIZER INC-2013285569

PATIENT
  Sex: Female

DRUGS (1)
  1. LOPID [Suspect]
     Dosage: 600 MG, UNK

REACTIONS (1)
  - Dementia Alzheimer^s type [Unknown]
